FAERS Safety Report 14997195 (Version 1)
Quarter: 2018Q2

REPORT INFORMATION
  Report Type: Spontaneous
  Country: FR (occurrence: FR)
  Receive Date: 20180611
  Receipt Date: 20180611
  Transmission Date: 20180711
  Serious: Yes (Hospitalization)
  Sender: FDA-Public Use
  Company Number: FR-TEVA-2018-FR-904603

PATIENT
  Age: 58 Year
  Sex: Male
  Weight: 98 kg

DRUGS (4)
  1. CYTARABINE. [Suspect]
     Active Substance: CYTARABINE
     Indication: ACUTE MYELOID LEUKAEMIA
     Dosage: 445 MILLIGRAM DAILY;
     Route: 042
     Dates: start: 20180228, end: 20180306
  2. DAUNOXOME [Suspect]
     Active Substance: DAUNORUBICIN CITRATE
     Indication: ACUTE MYELOID LEUKAEMIA
     Dosage: 200 MILLIGRAM DAILY;
     Route: 042
     Dates: start: 20180227, end: 20180302
  3. FASTURTEC [Concomitant]
     Active Substance: RASBURICASE
     Indication: ACUTE MYELOID LEUKAEMIA
     Route: 042
     Dates: start: 20180215, end: 20180215
  4. HYDREA [Concomitant]
     Active Substance: HYDROXYUREA
     Indication: ACUTE MYELOID LEUKAEMIA
     Route: 048
     Dates: start: 20180215, end: 20180215

REACTIONS (1)
  - Cardiac failure [Recovering/Resolving]

NARRATIVE: CASE EVENT DATE: 20180307
